FAERS Safety Report 19087802 (Version 1)
Quarter: 2021Q2

REPORT INFORMATION
  Report Type: Spontaneous
  Country: US (occurrence: US)
  Receive Date: 20210402
  Receipt Date: 20210402
  Transmission Date: 20210717
  Serious: Yes (Other)
  Sender: FDA-Public Use
  Company Number: None

PATIENT
  Age: 66 Year
  Sex: Female
  Weight: 113.4 kg

DRUGS (10)
  1. VITAMIN D3 [Concomitant]
     Active Substance: CHOLECALCIFEROL
  2. ZYRTEC [Concomitant]
     Active Substance: CETIRIZINE HYDROCHLORIDE
  3. GLUOCASMINE [Concomitant]
  4. NASAL SPRAY CREAMS [Concomitant]
  5. TRIAMCINOLONE ACETONIDE. [Concomitant]
     Active Substance: TRIAMCINOLONE ACETONIDE
  6. COLACE [Concomitant]
     Active Substance: DOCUSATE SODIUM
  7. FISH OIL [Concomitant]
     Active Substance: FISH OIL
  8. PROBIOTIC [Concomitant]
     Active Substance: PROBIOTICS NOS
  9. BAMLANIVIMAB. [Suspect]
     Active Substance: BAMLANIVIMAB
     Indication: COVID-19 TREATMENT
  10. CALCIUM [Concomitant]
     Active Substance: CALCIUM

REACTIONS (3)
  - Tremor [None]
  - Rash [None]
  - Pyrexia [None]

NARRATIVE: CASE EVENT DATE: 20210309
